FAERS Safety Report 5856648-0 (Version None)
Quarter: 2008Q3

REPORT INFORMATION
  Report Type: 
  Country: None (occurrence: None)
  Receive Date: 20080822
  Receipt Date: 20080822
  Transmission Date: 20090109
  Serious: Yes (Life-Threatening, Hospitalization)
  Sender: FDA-Public Use
  Company Number: None

PATIENT
  Sex: Female
  Weight: 16 kg

DRUGS (2)
  1. CO-TRIMOXAXOLE [Suspect]
     Indication: ANTIFUNGAL PROPHYLAXIS
     Dosage: 22 MG DAILY PO
     Route: 048
  2. CO-TRIMOXAXOLE [Suspect]
     Indication: PROPHYLAXIS URINARY TRACT INFECTION
     Dosage: 22 MG DAILY PO
     Route: 048

REACTIONS (6)
  - CLOSTRIDIUM DIFFICILE COLITIS [None]
  - DEHYDRATION [None]
  - HYPERKALAEMIA [None]
  - HYPERPHOSPHATAEMIA [None]
  - METABOLIC ACIDOSIS [None]
  - RENAL FAILURE ACUTE [None]
